FAERS Safety Report 10231426 (Version 1)
Quarter: 2014Q2

REPORT INFORMATION
  Report Type: Spontaneous
  Country: US (occurrence: US)
  Receive Date: 20140611
  Receipt Date: 20140611
  Transmission Date: 20141212
  Serious: Yes (Other)
  Sender: FDA-Public Use
  Company Number: US-JNJFOC-20140603251

PATIENT
  Sex: 0

DRUGS (6)
  1. INFLIXIMAB, RECOMBINANT [Suspect]
     Indication: INFLAMMATORY BOWEL DISEASE
     Route: 042
  2. AZATHIOPRINE [Suspect]
     Indication: INFLAMMATORY BOWEL DISEASE
     Route: 065
  3. MERCAPTOPURINE [Suspect]
     Indication: INFLAMMATORY BOWEL DISEASE
     Route: 065
  4. METHOTREXATE [Suspect]
     Indication: INFLAMMATORY BOWEL DISEASE
     Route: 065
  5. 5 AMINOSALICYLIC ACID [Concomitant]
     Route: 065
  6. HYDROCORTISONE ENEMA [Concomitant]
     Route: 065

REACTIONS (6)
  - Lupus-like syndrome [Unknown]
  - Treatment failure [Unknown]
  - Infusion related reaction [Unknown]
  - Opportunistic infection [Unknown]
  - Drug specific antibody present [Unknown]
  - Immunosuppressant drug level decreased [Unknown]
